FAERS Safety Report 14147940 (Version 2)
Quarter: 2019Q4

REPORT INFORMATION
  Report Type: Spontaneous
  Country: US (occurrence: US)
  Receive Date: 20171031
  Receipt Date: 20191204
  Transmission Date: 20200122
  Serious: No
  Sender: FDA-Public Use
  Company Number: US-ELI_LILLY_AND_COMPANY-US201710011069

PATIENT
  Age: 71 Year
  Sex: Female

DRUGS (1)
  1. HUMULIN R [Suspect]
     Active Substance: INSULIN HUMAN
     Indication: TYPE 2 DIABETES MELLITUS
     Dosage: 50 U, TID
     Route: 058
     Dates: start: 20190729

REACTIONS (9)
  - Diabetes mellitus inadequate control [Unknown]
  - Weight increased [Not Recovered/Not Resolved]
  - Abdominal distension [Recovering/Resolving]
  - Cataract diabetic [Recovering/Resolving]
  - Hypertension [Recovering/Resolving]
  - Visual impairment [Recovering/Resolving]
  - Neuropathy peripheral [Not Recovered/Not Resolved]
  - Blood cholesterol increased [Recovering/Resolving]
  - Glycosylated haemoglobin increased [Recovering/Resolving]
